FAERS Safety Report 25864789 (Version 1)
Quarter: 2025Q3

REPORT INFORMATION
  Report Type: Report from Study
  Country: AR (occurrence: AR)
  Receive Date: 20250930
  Receipt Date: 20250930
  Transmission Date: 20251021
  Serious: Yes (Other)
  Sender: NOVARTIS
  Company Number: AR-002147023-NVSC2024AR094488

PATIENT
  Age: 46 Year
  Sex: Female

DRUGS (7)
  1. KISQALI [Suspect]
     Active Substance: RIBOCICLIB SUCCINATE
     Indication: Breast cancer metastatic
     Dosage: 600 MG, QD
     Route: 048
     Dates: start: 20240129
  2. KISQALI [Suspect]
     Active Substance: RIBOCICLIB SUCCINATE
     Dosage: 3 / 600 MG, QD (3 TABLETS PER DAY)
     Route: 065
     Dates: start: 2024
  3. FEMARA [Suspect]
     Active Substance: LETROZOLE
     Indication: Product used for unknown indication
     Route: 065
  4. TAMOXIFEN [Concomitant]
     Active Substance: TAMOXIFEN
     Indication: Breast cancer metastatic
     Dosage: 1 DOSAGE FORM, QD
     Route: 065
     Dates: start: 2020
  5. VERZENIO [Concomitant]
     Active Substance: ABEMACICLIB
     Indication: Product used for unknown indication
     Dosage: 150 MG, Q12H
     Route: 065
  6. XGEVA [Concomitant]
     Active Substance: DENOSUMAB
     Indication: Bone disorder
     Dosage: UNK, Q12H
     Route: 065
  7. GOSERELIN [Concomitant]
     Active Substance: GOSERELIN
     Indication: Product used for unknown indication
     Dosage: UNK, Q4W (INJECTABLE SOLUTION) (EVERY 28 DAYS)
     Route: 065

REACTIONS (20)
  - Metastases to lymph nodes [Unknown]
  - Metastases to bone [Not Recovered/Not Resolved]
  - Malignant neoplasm progression [Unknown]
  - Hepatotoxicity [Unknown]
  - Hepatic enzyme abnormal [Recovering/Resolving]
  - Pancytopenia [Unknown]
  - Neuropathy peripheral [Unknown]
  - Hepatic fibrosis [Unknown]
  - Enzyme level increased [Unknown]
  - Adverse reaction [Unknown]
  - Yellow skin [Unknown]
  - Decreased appetite [Unknown]
  - Abdominal discomfort [Unknown]
  - Regurgitation [Unknown]
  - Eructation [Unknown]
  - Chills [Unknown]
  - Tremor [Unknown]
  - Purpura [Unknown]
  - Petechiae [Unknown]
  - Laboratory test abnormal [Unknown]

NARRATIVE: CASE EVENT DATE: 20240401
